FAERS Safety Report 7293147-6 (Version None)
Quarter: 2011Q1

REPORT INFORMATION
  Report Type: 
  Country: None (occurrence: None)
  Receive Date: 20110203
  Receipt Date: 20110126
  Transmission Date: 20110831
  Serious: Yes (Other)
  Sender: FDA-Public Use
  Company Number: 2011SP004301

PATIENT
  Age: 43 Year
  Sex: Female

DRUGS (1)
  1. CERAZETTE (DESOGESTREL /00754001/) [Suspect]
     Indication: CONTRACEPTION
     Dates: start: 20110117

REACTIONS (4)
  - AGITATION [None]
  - LIP SWELLING [None]
  - PRURITUS [None]
  - INSOMNIA [None]
